FAERS Safety Report 8533238-2 (Version None)
Quarter: 2012Q3

REPORT INFORMATION
  Report Type: 
  Country: None (occurrence: None)
  Receive Date: 20120724
  Receipt Date: 20120711
  Transmission Date: 20120928
  Serious: Yes (Other)
  Sender: FDA-Public Use
  Company Number: JP-PFIZER INC-2012168102

PATIENT
  Age: 77 Year
  Sex: Female

DRUGS (4)
  1. CELEBREX [Suspect]
     Indication: OSTEOARTHRITIS
     Dosage: 100 MG DAILY
     Route: 048
     Dates: start: 20120612, end: 20120626
  2. CANDESARTAN CILEXETIL [Concomitant]
     Indication: HYPERTENSION
     Dosage: UNK
     Dates: start: 20120303
  3. EVISTA [Suspect]
     Indication: OSTEOPOROSIS
     Dosage: 60 MG DAILY
     Route: 048
     Dates: end: 20120626
  4. NORVASC [Suspect]
     Indication: HYPERTENSION
     Dosage: 2.5 MG DAILY
     Route: 048
     Dates: end: 20120626

REACTIONS (3)
  - RASH GENERALISED [None]
  - INTENTIONAL DRUG MISUSE [None]
  - PYREXIA [None]
